FAERS Safety Report 20095934 (Version 1)
Quarter: 2021Q4

REPORT INFORMATION
  Report Type: Spontaneous
  Country: US (occurrence: US)
  Receive Date: 20211122
  Receipt Date: 20211122
  Transmission Date: 20220303
  Serious: No
  Sender: FDA-Public Use
  Company Number: US-ONCOPEPPR-00029

PATIENT
  Age: 61 Year
  Sex: Male
  Weight: 124.28 kg

DRUGS (1)
  1. PEPAXTO [Suspect]
     Active Substance: MELPHALAN FLUFENAMIDE
     Indication: Plasma cell myeloma
     Route: 065
     Dates: start: 20210408

REACTIONS (2)
  - Platelet count decreased [Unknown]
  - Arthropod bite [Unknown]
